FAERS Safety Report 6826619-6 (Version None)
Quarter: 2010Q3

REPORT INFORMATION
  Report Type: 
  Country: None (occurrence: None)
  Receive Date: 20100709
  Receipt Date: 20100630
  Transmission Date: 20110219
  Serious: Yes (Other)
  Sender: FDA-Public Use
  Company Number: JP-PFIZER INC-2010070654

PATIENT
  Sex: Female

DRUGS (1)
  1. HALCION [Suspect]
     Dosage: 0.25 MG, 1X/DAY

REACTIONS (1)
  - RENAL IMPAIRMENT [None]
